FAERS Safety Report 6234684-2 (Version None)
Quarter: 2009Q2

REPORT INFORMATION
  Report Type: 
  Country: None (occurrence: None)
  Receive Date: 20090618
  Receipt Date: 20090615
  Transmission Date: 20091009
  Serious: Yes (Hospitalization)
  Sender: FDA-Public Use
  Company Number: US-EISAI INC.-E2080-00174-SPO-US

PATIENT
  Age: 49 Year
  Sex: Female

DRUGS (1)
  1. BANZEL [Suspect]
     Indication: DRUG USE FOR UNKNOWN INDICATION
     Route: 048
     Dates: end: 20090601

REACTIONS (2)
  - CONVULSION [None]
  - LIVER FUNCTION TEST ABNORMAL [None]
